FAERS Safety Report 15515846 (Version 2)
Quarter: 2019Q2

REPORT INFORMATION
  Report Type: Spontaneous
  Country: CA (occurrence: CA)
  Receive Date: 20181017
  Receipt Date: 20190604
  Transmission Date: 20190711
  Serious: Yes (Life-Threatening, Other)
  Sender: FDA-Public Use
  Company Number: CA-AUROBINDO-AUR-APL-2018-049750

PATIENT

DRUGS (15)
  1. RISEDRONATE [Suspect]
     Active Substance: RISEDRONATE SODIUM
     Indication: OSTEOGENESIS IMPERFECTA
  2. PAMIDRONATE DISODIUM. [Suspect]
     Active Substance: PAMIDRONATE DISODIUM
     Dosage: 90 MILLIGRAM
     Route: 042
  3. PAMIDRONATE DISODIUM. [Suspect]
     Active Substance: PAMIDRONATE DISODIUM
     Indication: PLASMA CELL MYELOMA
     Dosage: 60 MILLIGRAM
     Route: 042
  4. ACTONEL [Suspect]
     Active Substance: RISEDRONATE SODIUM
     Indication: OSTEOGENESIS IMPERFECTA
     Dosage: UNK
     Route: 065
  5. ACTONEL [Suspect]
     Active Substance: RISEDRONATE SODIUM
     Indication: OSTEOGENESIS IMPERFECTA
     Dosage: UNK
     Route: 065
  6. CALCIUM [Concomitant]
     Active Substance: CALCIUM
     Indication: MENOPAUSAL SYMPTOMS
     Dosage: UNK
     Route: 065
  7. ALENDRONIC ACID TABLETS [Suspect]
     Active Substance: ALENDRONIC ACID
     Indication: OSTEOGENESIS IMPERFECTA
     Dosage: LONG-TERM BISPHOSPHONATE USE
     Route: 065
  8. ALENDRONIC ACID TABLETS [Suspect]
     Active Substance: ALENDRONIC ACID
     Indication: BONE LOSS
  9. ALENDRONIC ACID [Suspect]
     Active Substance: ALENDRONIC ACID
     Indication: OSTEOGENESIS IMPERFECTA
  10. ACTONEL [Suspect]
     Active Substance: RISEDRONATE SODIUM
     Indication: BONE LOSS
  11. VITAMIN D [Suspect]
     Active Substance: VITAMIN D NOS
     Indication: MENOPAUSAL SYMPTOMS
     Dosage: UNK
     Route: 065
  12. ESTROGEN [Concomitant]
     Active Substance: ESTROGENS
     Indication: MENOPAUSAL SYMPTOMS
     Dosage: UNK
     Route: 065
  13. ALENDRONIC ACID [Suspect]
     Active Substance: ALENDRONIC ACID
     Indication: BONE LOSS
  14. RISEDRONATE [Suspect]
     Active Substance: RISEDRONATE SODIUM
     Indication: BONE LOSS
     Dosage: UNK
     Route: 065
     Dates: start: 201403, end: 201410
  15. ACTONEL [Suspect]
     Active Substance: RISEDRONATE SODIUM
     Indication: BONE LOSS

REACTIONS (2)
  - Atypical femur fracture [Recovered/Resolved]
  - Plasma cell myeloma [Recovered/Resolved]

NARRATIVE: CASE EVENT DATE: 201410
